FAERS Safety Report 6521742-8 (Version None)
Quarter: 2009Q4

REPORT INFORMATION
  Report Type: 
  Country: None (occurrence: None)
  Receive Date: 20091229
  Receipt Date: 20091229
  Transmission Date: 20100525
  Serious: Yes (Other)
  Sender: FDA-Public Use
  Company Number: None

PATIENT
  Sex: Female
  Weight: 67.586 kg

DRUGS (1)
  1. SUMATRIPTAIN [Suspect]
     Indication: MIGRAINE
     Dosage: 50MG
     Dates: start: 20091010

REACTIONS (2)
  - DIZZINESS [None]
  - DRUG INEFFECTIVE [None]
